FAERS Safety Report 7508799-2 (Version None)
Quarter: 2011Q2

REPORT INFORMATION
  Report Type: 
  Country: None (occurrence: None)
  Receive Date: 20110527
  Receipt Date: 20110318
  Transmission Date: 20111010
  Serious: No
  Sender: FDA-Public Use
  Company Number: A0919016A

PATIENT
  Age: 76 Year
  Sex: Female

DRUGS (5)
  1. IBUPROFEN [Concomitant]
  2. BENADRYL [Concomitant]
  3. ASPIRIN [Concomitant]
  4. ALBUTEROL SULFATE AUTOHALER [Suspect]
     Indication: ASTHMA
     Dosage: 1PUFF PER DAY
     Route: 055
     Dates: start: 20110220
  5. PRIMATENE MIST [Concomitant]

REACTIONS (3)
  - WHEEZING [None]
  - DRUG INEFFECTIVE [None]
  - DYSPNOEA [None]
